FAERS Safety Report 5049784-2 (Version None)
Quarter: 2006Q3

REPORT INFORMATION
  Report Type: 
  Country: None (occurrence: None)
  Receive Date: 20060706
  Receipt Date: 20060620
  Transmission Date: 20061208
  Serious: Yes (Hospitalization)
  Sender: FDA-Public Use
  Company Number: 2006-DE-03203GD

PATIENT
  Age: 58 Year
  Sex: Male

DRUGS (4)
  1. PRAMIPEXOLE DIHYDROCHLORIDE [Suspect]
     Indication: PARKINSON'S DISEASE
     Dosage: 6 MG
  2. AMANTADINE HCL [Suspect]
     Indication: PARKINSON'S DISEASE
     Dosage: 400 MG
  3. MIDAZOLAM HYDROCHLORIDE [Suspect]
     Dosage: 1 MG
  4. SINEMET [Suspect]
     Indication: PARKINSON'S DISEASE
     Dosage: CARBIDOPA 100 MG, LEVODOPA 800 MG

REACTIONS (5)
  - CONDITION AGGRAVATED [None]
  - CONSTIPATION [None]
  - DYSKINESIA [None]
  - PARKINSON'S DISEASE [None]
  - PROCEDURAL COMPLICATION [None]
